FAERS Safety Report 7248776-2 (Version None)
Quarter: 2011Q1

REPORT INFORMATION
  Report Type: 
  Country: None (occurrence: None)
  Receive Date: 20110118
  Receipt Date: 20110106
  Transmission Date: 20110831
  Serious: Yes (Hospitalization)
  Sender: FDA-Public Use
  Company Number: DSA_44647_2011

PATIENT
  Age: 83 Year
  Sex: Male

DRUGS (5)
  1. MONO-TILDIEM (MONO-TILDIEM- DILTIAZEM HYDROCHLORIDE MODIFIED-RELEASE) [Suspect]
     Indication: PRODUCT USED FOR UNKNOWN INDICATION
     Dosage: (300 MG QD ORAL)
     Route: 048
     Dates: end: 20101103
  2. TAHOR [Concomitant]
  3. ATENOLOL [Suspect]
     Indication: PRODUCT USED FOR UNKNOWN INDICATION
     Dosage: (100 MG QD ORAL), (50 MG QD ORAL)
     Route: 048
     Dates: start: 20101108
  4. ATENOLOL [Suspect]
     Indication: PRODUCT USED FOR UNKNOWN INDICATION
     Dosage: (100 MG QD ORAL), (50 MG QD ORAL)
     Route: 048
     Dates: end: 20101103
  5. ASPIRIN [Concomitant]

REACTIONS (5)
  - BRADYCARDIA [None]
  - HYPERKALAEMIA [None]
  - NODAL RHYTHM [None]
  - RENAL FAILURE [None]
  - SINUS ARRHYTHMIA [None]
